FAERS Safety Report 20487205 (Version 2)
Quarter: 2023Q1

REPORT INFORMATION
  Report Type: Report from Study
  Country: CA (occurrence: CA)
  Receive Date: 20220217
  Receipt Date: 20230302
  Transmission Date: 20230417
  Serious: Yes (Hospitalization)
  Sender: FDA-Public Use
  Company Number: CA-ABBVIE-22K-028-4281177-00

PATIENT
  Sex: Female

DRUGS (1)
  1. SKYRIZI [Suspect]
     Active Substance: RISANKIZUMAB-RZAA
     Indication: Psoriasis
     Dosage: 75 MG STRENGHTH
     Route: 058
     Dates: start: 202004

REACTIONS (4)
  - Atrioventricular block complete [Unknown]
  - Arrhythmia [Unknown]
  - Poor peripheral circulation [Unknown]
  - Loss of consciousness [Unknown]
